FAERS Safety Report 5095763-9 (Version None)
Quarter: 2006Q3

REPORT INFORMATION
  Report Type: 
  Country: None (occurrence: None)
  Receive Date: 20060731
  Receipt Date: 20060501
  Transmission Date: 20061208
  Serious: No
  Sender: FDA-Public Use
  Company Number: 2006PV013064

PATIENT
  Age: 66 Year
  Sex: Female
  Weight: 82.5547 kg

DRUGS (17)
  1. BYETTA [Suspect]
     Indication: DIABETES MELLITUS NON-INSULIN-DEPENDENT
     Dosage: SEE IMAGE
     Route: 058
     Dates: start: 20060319, end: 20060421
  2. BYETTA [Suspect]
     Indication: DIABETES MELLITUS NON-INSULIN-DEPENDENT
     Dosage: SEE IMAGE
     Route: 058
     Dates: start: 20060421, end: 20060523
  3. AMARYL [Concomitant]
  4. METFORMIN [Concomitant]
  5. METFORMIN [Concomitant]
  6. CELEXA [Concomitant]
  7. STEROID INJECTION [Concomitant]
  8. STELAZINE [Concomitant]
  9. DEXEDRINE [Concomitant]
  10. DEXEDRINE [Concomitant]
  11. LEVOXYL [Concomitant]
  12. LIPITOR [Concomitant]
  13. RANITIDINE [Concomitant]
  14. TRICOR [Concomitant]
  15. COREG [Concomitant]
  16. DIURETIC [Concomitant]
  17. GLUCOPHAGE [Concomitant]

REACTIONS (18)
  - ASTHENIA [None]
  - BLOOD GLUCOSE DECREASED [None]
  - COLD SWEAT [None]
  - DEPRESSION [None]
  - FEELING ABNORMAL [None]
  - FLUID RETENTION [None]
  - HYPERSENSITIVITY [None]
  - HYPOAESTHESIA [None]
  - INJECTION SITE BRUISING [None]
  - MUCOSAL INFLAMMATION [None]
  - MUSCLE TWITCHING [None]
  - NASAL DISCOMFORT [None]
  - NASAL OEDEMA [None]
  - NAUSEA [None]
  - OEDEMA PERIPHERAL [None]
  - PARAESTHESIA [None]
  - SKIN INFECTION [None]
  - TREMOR [None]
